FAERS Safety Report 14061030 (Version 1)
Quarter: 2017Q4

REPORT INFORMATION
  Report Type: Spontaneous
  Country: US (occurrence: US)
  Receive Date: 20171007
  Receipt Date: 20171007
  Transmission Date: 20180321
  Serious: Yes (Other)
  Sender: FDA-Public Use
  Company Number: US-009507513-1710USA001450

PATIENT
  Age: 59 Year
  Sex: Female

DRUGS (4)
  1. VICTRELIS [Suspect]
     Active Substance: BOCEPREVIR
     Indication: CHRONIC HEPATITIS C
     Dosage: UNK
     Route: 048
     Dates: start: 20130415
  2. REBETOL [Suspect]
     Active Substance: RIBAVIRIN
     Indication: CHRONIC HEPATITIS C
     Dosage: 1000 MG, DAILY
     Route: 048
     Dates: start: 20130311
  3. EPOETIN ALFA [Concomitant]
     Active Substance: ERYTHROPOIETIN
  4. PEGINTERFERON ALFA-2A. [Suspect]
     Active Substance: PEGINTERFERON ALFA-2A
     Indication: CHRONIC HEPATITIS C
     Dosage: 180 MICROGRAM, QW
     Route: 058
     Dates: start: 20130311

REACTIONS (8)
  - Anaemia [Unknown]
  - Influenza like illness [Unknown]
  - Dizziness [Unknown]
  - Nausea [Unknown]
  - Amylase abnormal [Unknown]
  - Loss of consciousness [Unknown]
  - Dyspnoea [Unknown]
  - Vomiting [Unknown]
